FAERS Safety Report 7657287-1 (Version None)
Quarter: 2011Q3

REPORT INFORMATION
  Report Type: 
  Country: None (occurrence: None)
  Receive Date: 20110804
  Receipt Date: 20110726
  Transmission Date: 20111222
  Serious: Yes (Other)
  Sender: FDA-Public Use
  Company Number: PHHY2011TR61549

PATIENT
  Age: 10 Year
  Sex: Male

DRUGS (1)
  1. EXJADE [Suspect]
     Indication: CHELATION THERAPY
     Dates: start: 20090101

REACTIONS (2)
  - FALL [None]
  - UPPER LIMB FRACTURE [None]
